FAERS Safety Report 24527660 (Version 1)
Quarter: 2024Q4

REPORT INFORMATION
  Report Type: Spontaneous
  Country: US (occurrence: US)
  Receive Date: 20241021
  Receipt Date: 20241021
  Transmission Date: 20250115
  Serious: No
  Sender: AMNEAL
  Company Number: US-AMNEAL PHARMACEUTICALS-2023-AMRX-03306

PATIENT
  Age: 72 Year
  Sex: Female
  Weight: 105.22 kg

DRUGS (5)
  1. PROGESTERONE [Suspect]
     Active Substance: PROGESTERONE
     Indication: Product used for unknown indication
     Dosage: 1 CAPSULES (200MG), 1 /DAY
     Route: 048
     Dates: start: 2019
  2. METOPROLOL TARTRATE [Concomitant]
     Active Substance: METOPROLOL TARTRATE
     Indication: Product used for unknown indication
     Dosage: 1 TABLETS(25MG), 2 /DAY
     Route: 048
     Dates: start: 2004
  3. LISINOPRIL AND HYDROCHLOROTHIAZIDE [Concomitant]
     Active Substance: HYDROCHLOROTHIAZIDE\LISINOPRIL
     Indication: Product used for unknown indication
     Dosage: 1 TABLETS, (10/1.25 MG) 1 /DAY
     Route: 048
     Dates: start: 2016
  4. ALLOPURINOL [Concomitant]
     Active Substance: ALLOPURINOL
     Indication: Product used for unknown indication
     Dosage: 1 TABLETS (100 MG), 1 /DAY
     Route: 065
     Dates: start: 2017
  5. CHOLECALCIFEROL [Concomitant]
     Active Substance: CHOLECALCIFEROL
     Indication: Product used for unknown indication
     Dosage: 1 CAPSULES (2000 UNITS DOSE), 1 /DAY
     Route: 048
     Dates: start: 2019

REACTIONS (3)
  - Oropharyngeal discomfort [Not Recovered/Not Resolved]
  - Product use complaint [Not Recovered/Not Resolved]
  - Product physical issue [Unknown]

NARRATIVE: CASE EVENT DATE: 20230901
